FAERS Safety Report 12426335 (Version 2)
Quarter: 2016Q2

REPORT INFORMATION
  Report Type: Spontaneous
  Country: US (occurrence: US)
  Receive Date: 20160601
  Receipt Date: 20160608
  Transmission Date: 20160815
  Serious: Yes (Hospitalization, Other)
  Sender: FDA-Public Use
  Company Number: US-MYLANLABS-2016M1021905

PATIENT

DRUGS (3)
  1. EPINEPHRINE. [Suspect]
     Active Substance: EPINEPHRINE
     Indication: SWOLLEN TONGUE
     Dosage: UNK
     Route: 042
  2. EPINEPHRINE. [Suspect]
     Active Substance: EPINEPHRINE
     Indication: DYSPNOEA
  3. EPINEPHRINE. [Suspect]
     Active Substance: EPINEPHRINE
     Indication: PARAESTHESIA ORAL
     Dosage: UNK
     Route: 058

REACTIONS (2)
  - Drug ineffective [Recovered/Resolved]
  - Ventricular tachycardia [Recovered/Resolved]

NARRATIVE: CASE EVENT DATE: 20160520
